FAERS Safety Report 17926509 (Version 1)
Quarter: 2020Q2

REPORT INFORMATION
  Report Type: Spontaneous
  Country: US (occurrence: US)
  Receive Date: 20200623
  Receipt Date: 20200623
  Transmission Date: 20200714
  Serious: No
  Sender: FDA-Public Use
  Company Number: US-APPCO PHARMA LLC-2086528

PATIENT
  Age: 12 Year
  Sex: Male
  Weight: 47.59 kg

DRUGS (4)
  1. RANITIDINE HYDROCHLORIDE. [Suspect]
     Active Substance: RANITIDINE HYDROCHLORIDE
     Indication: PRODUCT USED FOR UNKNOWN INDICATION
     Route: 065
  2. EMFLAZA [Suspect]
     Active Substance: DEFLAZACORT
     Route: 048
  3. TUMS (CALCIUM CARBONATE, MAGNESIUM CARBONATE, MAGNESIUM) [Concomitant]
     Route: 065
  4. TRISILICATE [Concomitant]
     Route: 065

REACTIONS (3)
  - Skin striae [Unknown]
  - Weight decreased [Unknown]
  - Peripheral swelling [Recovering/Resolving]
